FAERS Safety Report 23116351 (Version 1)
Quarter: 2023Q4

REPORT INFORMATION
  Report Type: Spontaneous
  Country: US (occurrence: US)
  Receive Date: 20231027
  Receipt Date: 20231027
  Transmission Date: 20240109
  Serious: No
  Sender: FDA-Public Use
  Company Number: US-MYLANLABS-2023M1113779

PATIENT
  Sex: Male
  Weight: 72.57 kg

DRUGS (1)
  1. EPLERENONE [Suspect]
     Active Substance: EPLERENONE
     Indication: Dementia
     Dosage: 25 MILLIGRAM
     Route: 065

REACTIONS (1)
  - Off label use [Unknown]
